FAERS Safety Report 21400561 (Version 3)
Quarter: 2023Q2

REPORT INFORMATION
  Report Type: Report from Study
  Country: TW (occurrence: TW)
  Receive Date: 20221003
  Receipt Date: 20230612
  Transmission Date: 20230722
  Serious: Yes (Hospitalization)
  Sender: FDA-Public Use
  Company Number: TW-NOVARTISPH-NVSC2022TW016366

PATIENT
  Age: 32 Month
  Sex: Male

DRUGS (5)
  1. ZOLGENSMA [Suspect]
     Active Substance: ONASEMNOGENE ABEPARVOVEC-XIOI
     Indication: Spinal muscular atrophy
     Dosage: 440 TVG IF, QD
     Route: 042
     Dates: start: 20190607
  2. NUSINERSEN [Concomitant]
     Active Substance: NUSINERSEN
     Indication: Spinal muscular atrophy
     Dosage: 12 MG, ONCE/SINGLE
     Route: 037
     Dates: start: 20211110, end: 20211110
  3. NUSINERSEN [Concomitant]
     Active Substance: NUSINERSEN
     Dosage: 12 MG, ONCE/SINGLE
     Route: 037
     Dates: start: 20211124, end: 20211124
  4. NUSINERSEN [Concomitant]
     Active Substance: NUSINERSEN
     Dosage: 12 MG, ONCE/SINGLE
     Route: 037
     Dates: start: 20211208, end: 20211208
  5. NUSINERSEN [Concomitant]
     Active Substance: NUSINERSEN
     Dosage: 12 MG, ONCE/SINGLE
     Route: 037
     Dates: start: 20220112, end: 20220112

REACTIONS (3)
  - Pneumonia [Recovered/Resolved]
  - Pneumonia [Not Recovered/Not Resolved]
  - Bronchiolitis [Recovered/Resolved]

NARRATIVE: CASE EVENT DATE: 20220124
